FAERS Safety Report 5707476-8 (Version None)
Quarter: 2008Q2

REPORT INFORMATION
  Report Type: 
  Country: None (occurrence: None)
  Receive Date: 20080416
  Receipt Date: 20080404
  Transmission Date: 20081010
  Serious: No
  Sender: FDA-Public Use
  Company Number: US-ELI_LILLY_AND_COMPANY-US200804001293

PATIENT
  Sex: Male

DRUGS (2)
  1. CYMBALTA [Suspect]
     Indication: DEPRESSION
     Dosage: 30 MG, DAILY (1/D)
     Dates: start: 20080328
  2. AMBIEN [Concomitant]
     Dosage: 1 D/F, UNK

REACTIONS (2)
  - ABDOMINAL PAIN [None]
  - URINE COLOUR ABNORMAL [None]
